FAERS Safety Report 21723195 (Version 1)
Quarter: 2022Q4

REPORT INFORMATION
  Report Type: Report from Study
  Country: US (occurrence: None)
  Receive Date: 20221213
  Receipt Date: 20221213
  Transmission Date: 20230112
  Serious: Yes (Hospitalization)
  Sender: FDA-Public Use
  Company Number: 2022A397893

PATIENT
  Age: 28709 Day
  Sex: Male

DRUGS (1)
  1. CALQUENCE [Suspect]
     Active Substance: ACALABRUTINIB
     Indication: Chronic lymphocytic leukaemia
     Route: 048
     Dates: end: 20221116

REACTIONS (12)
  - Oedema peripheral [Unknown]
  - Protein total decreased [Unknown]
  - Mobility decreased [Unknown]
  - Oral pain [Unknown]
  - Decreased appetite [Unknown]
  - Dysphonia [Unknown]
  - Hypotension [Unknown]
  - Blood sodium abnormal [Unknown]
  - Anaemia [Unknown]
  - Asthenia [Unknown]
  - Emotional distress [Not Recovered/Not Resolved]
  - Therapy cessation [Not Recovered/Not Resolved]

NARRATIVE: CASE EVENT DATE: 20221116
